FAERS Safety Report 23770057 (Version 1)
Quarter: 2024Q2

REPORT INFORMATION
  Report Type: Spontaneous
  Country: PT (occurrence: PT)
  Receive Date: 20240422
  Receipt Date: 20240422
  Transmission Date: 20240715
  Serious: Yes (Death)
  Sender: FDA-Public Use
  Company Number: PT-GUERBET / MARTINS + FERNANDES-PT-20240004

PATIENT
  Age: 72 Year
  Sex: Female

DRUGS (4)
  1. LIPIODOL [Suspect]
     Active Substance: ETHIODIZED OIL
     Indication: Therapeutic embolisation
  2. OCRYLATE [Suspect]
     Active Substance: OCRYLATE
     Indication: Therapeutic embolisation
  3. CEFTRIAXONE [Concomitant]
     Active Substance: CEFTRIAXONE\CEFTRIAXONE SODIUM
     Indication: Product used for unknown indication
  4. PROPOFOL [Concomitant]
     Active Substance: PROPOFOL
     Indication: Product used for unknown indication

REACTIONS (3)
  - Cerebral artery embolism [Fatal]
  - Embolism arterial [Fatal]
  - Product use in unapproved indication [Fatal]
